FAERS Safety Report 15004400 (Version 6)
Quarter: 2020Q2

REPORT INFORMATION
  Report Type: Spontaneous
  Country: US (occurrence: US)
  Receive Date: 20180613
  Receipt Date: 20200625
  Transmission Date: 20200713
  Serious: Yes (Other)
  Sender: FDA-Public Use
  Company Number: US-PFIZER INC-2018239741

PATIENT
  Age: 74 Year
  Sex: Female
  Weight: 70.03 kg

DRUGS (8)
  1. LATANOPROST. [Suspect]
     Active Substance: LATANOPROST
     Indication: GLAUCOMA
     Dosage: 2 GTT, 1X/DAY(1 DROP BOTH EYES AT BEDTIME)
     Route: 047
     Dates: start: 20170516, end: 20180404
  2. LATANOPROST. [Suspect]
     Active Substance: LATANOPROST
     Dosage: 2 DROP, 1X/DAY (1 DROP BOTH EYES AT BEDTIME)
     Route: 047
     Dates: start: 20160714
  3. LUMIGAN [Concomitant]
     Active Substance: BIMATOPROST
     Indication: PRURITUS
     Dosage: 2 DROP, 1X/DAY (1 DROP IN BOTH EYES AT BEDTIME)
     Dates: start: 20160714
  4. LATANOPROST. [Suspect]
     Active Substance: LATANOPROST
     Dosage: 2 DROP, 1X/DAY (1 DROP IN EACH EYE AT BEDTIME)
     Route: 047
  5. TRAVATAN Z [Concomitant]
     Active Substance: TRAVOPROST
     Indication: PRURITUS
     Dosage: 2 DROP, 1X/DAY (1 DROP IN BOTH EYES AT BEDTIME)
     Dates: start: 20160714
  6. LUMIGAN [Concomitant]
     Active Substance: BIMATOPROST
     Indication: OCULAR HYPERTENSION
     Dosage: 2 DROP, 1X/DAY (1 DROP IN BOTH EYES AT BEDTIME)
     Dates: start: 20170512, end: 20170515
  7. TIMOLOL MALEATE. [Concomitant]
     Active Substance: TIMOLOL MALEATE
     Dosage: 1 DROP IN EACH EYE ONCE IN MORNING AND ONCE AT NIGHT
  8. TRAVATAN Z [Concomitant]
     Active Substance: TRAVOPROST
     Indication: INTRAOCULAR PRESSURE INCREASED
     Dosage: 2 DROP, 1X/DAY (1 DROP IN BOTH EYES AT BEDTIME)
     Dates: start: 20161107, end: 20170511

REACTIONS (10)
  - Ocular hyperaemia [Unknown]
  - Joint injury [Not Recovered/Not Resolved]
  - Drug hypersensitivity [Unknown]
  - Ocular hypertension [Unknown]
  - Memory impairment [Unknown]
  - Confusional state [Unknown]
  - Vision blurred [Unknown]
  - Pruritus [Recovered/Resolved]
  - Eye irritation [Unknown]
  - Drug ineffective [Unknown]

NARRATIVE: CASE EVENT DATE: 20170516
